FAERS Safety Report 7913863 (Version 2)
Quarter: 2012Q4

REPORT INFORMATION
  Report Type: Spontaneous
  Country: US (occurrence: None)
  Receive Date: 20110404
  Receipt Date: 20121009
  Transmission Date: 20130627
  Serious: Yes (Disabling, Other)
  Sender: FDA-Public Use
  Company Number: 2011MA002830

PATIENT
  Sex: Female

DRUGS (30)
  1. METOCLOPRAMIDE [Suspect]
     Indication: GASTROINTESTINAL DISORDER
     Dates: start: 20071004, end: 20090309
  2. ALPRAZOLAM [Concomitant]
  3. ROZEREM [Concomitant]
  4. NITROQUICK [Concomitant]
  5. DICYCLOMINE [Concomitant]
  6. PREVACID [Concomitant]
  7. CARMOL [Concomitant]
  8. TRICOR [Concomitant]
  9. CRESTOR [Concomitant]
  10. WELLBUTRIN [Concomitant]
  11. DIGOXIN [Concomitant]
  12. POTASSIUM [Concomitant]
  13. BUSPIRONE [Concomitant]
  14. HCTZ [Concomitant]
  15. PROPOXYPHENE/APAP [Concomitant]
  16. SINGULAIR [Concomitant]
  17. CLINDAMYCIN [Concomitant]
  18. DICYCLOMINE [Concomitant]
  19. LISINOPRIL [Concomitant]
  20. FOSAMAX [Concomitant]
  21. GABAPENTIN [Concomitant]
  22. HYDROCODONE [Concomitant]
  23. LANOXIN [Concomitant]
  24. ACTONEL [Concomitant]
  25. TRAMADOL [Concomitant]
  26. SPIRIVA [Concomitant]
  27. PROAIR [Concomitant]
  28. OXYCODONE [Concomitant]
  29. ALENDRONATE [Concomitant]
  30. CEPHALEXIN [Concomitant]

REACTIONS (11)
  - Extrapyramidal disorder [None]
  - Tardive dyskinesia [None]
  - Pain [None]
  - Anxiety [None]
  - Dyskinesia [None]
  - Excessive eye blinking [None]
  - Economic problem [None]
  - Impaired work ability [None]
  - Incorrect drug administration duration [None]
  - Unevaluable event [None]
  - Family stress [None]
